FAERS Safety Report 12220086 (Version 1)
Quarter: 2016Q1

REPORT INFORMATION
  Report Type: Spontaneous
  Country: NL (occurrence: NL)
  Receive Date: 20160330
  Receipt Date: 20160330
  Transmission Date: 20160526
  Serious: Yes (Other)
  Sender: FDA-Public Use
  Company Number: NL-APOTEX-2016AP007413

PATIENT
  Age: 65 Year
  Sex: Female

DRUGS (6)
  1. PREDNISOLONE. [Suspect]
     Active Substance: PREDNISOLONE
     Indication: DYSHIDROTIC ECZEMA
  2. AZATHIOPRINE APOTEX, TABLETTEN [Interacting]
     Active Substance: AZATHIOPRINE
     Indication: DERMATITIS ATOPIC
     Dosage: 50 MG, PER DAY
     Route: 065
  3. AZATHIOPRINE APOTEX, TABLETTEN [Interacting]
     Active Substance: AZATHIOPRINE
     Dosage: 150 MG PER DAY
     Route: 065
  4. AZATHIOPRINE APOTEX, TABLETTEN [Interacting]
     Active Substance: AZATHIOPRINE
     Indication: DYSHIDROTIC ECZEMA
     Dosage: 100 MG PER DAY
     Route: 065
  5. PREDNISOLONE. [Suspect]
     Active Substance: PREDNISOLONE
     Indication: DERMATITIS ATOPIC
     Dosage: 20-30 MG PER DAY IN A TAPERING DOSE
     Route: 048
  6. OMEPRAZOLE. [Interacting]
     Active Substance: OMEPRAZOLE
     Indication: GASTROINTESTINAL DISORDER
     Dosage: 20 MG PER DAY
     Route: 065

REACTIONS (4)
  - Drug interaction [Recovered/Resolved]
  - Gastrointestinal disorder [Unknown]
  - Liver injury [Recovered/Resolved]
  - Off label use [Not Recovered/Not Resolved]
